FAERS Safety Report 6097973-0 (Version None)
Quarter: 2009Q1

REPORT INFORMATION
  Report Type: 
  Country: None (occurrence: None)
  Receive Date: 20090227
  Receipt Date: 20090219
  Transmission Date: 20090719
  Serious: Yes (Hospitalization)
  Sender: FDA-Public Use
  Company Number: AT-ROCHE-611119

PATIENT
  Sex: Male
  Weight: 71 kg

DRUGS (4)
  1. CAPECITABINE [Suspect]
     Indication: COLON CANCER
     Dosage: CURRENT CYCLE:1,DOSING AMOUNT AS PER PROTOCOL LAST DOSE PRIOR TO SAE: 26 JAN 2009
     Route: 048
     Dates: start: 20090113
  2. BEVACIZUMAB [Suspect]
     Indication: COLON CANCER
     Dosage: CURRENT CYCLE 1, CURRENT CYCLE:1,DOSING AMOUNT AS PER PROTOCOL, TEMPORARILY INTERRUPTED
     Route: 042
     Dates: start: 20090113
  3. PANTOPRAZOLE SODIUM [Concomitant]
     Indication: PROPHYLAXIS
     Route: 048
     Dates: start: 20081217
  4. BIOCEPHAL [Concomitant]
     Route: 048

REACTIONS (1)
  - CEREBRAL ISCHAEMIA [None]
